FAERS Safety Report 6068900-7 (Version None)
Quarter: 2009Q1

REPORT INFORMATION
  Report Type: 
  Country: None (occurrence: None)
  Receive Date: 20090206
  Receipt Date: 20090127
  Transmission Date: 20090719
  Serious: Yes (Hospitalization)
  Sender: FDA-Public Use
  Company Number: US-ELI_LILLY_AND_COMPANY-US200812002411

PATIENT
  Sex: Female

DRUGS (5)
  1. BYETTA [Suspect]
     Dosage: UNK, UNKNOWN
     Route: 065
     Dates: start: 20070812, end: 20080801
  2. LISINOPRIL [Concomitant]
     Dosage: 20 MG, DAILY (1/D)
  3. METFORMIN HCL [Concomitant]
     Dosage: 500 MG, 2/D
     Dates: end: 20080812
  4. PROTONIX [Concomitant]
     Dosage: 20 MG, DAILY (1/D)
  5. TRICOR [Concomitant]
     Dosage: 145 MG, DAILY (1/D)

REACTIONS (2)
  - ASPARTATE AMINOTRANSFERASE INCREASED [None]
  - PANCREATITIS [None]
